FAERS Safety Report 19240096 (Version 1)
Quarter: 2021Q2

REPORT INFORMATION
  Report Type: Spontaneous
  Country: JP (occurrence: JP)
  Receive Date: 20210511
  Receipt Date: 20210511
  Transmission Date: 20210717
  Serious: Yes (Other)
  Sender: FDA-Public Use
  Company Number: JP-ROCHE-2827264

PATIENT
  Sex: Female

DRUGS (1)
  1. XOLAIR [Suspect]
     Active Substance: OMALIZUMAB
     Indication: ASTHMA
     Route: 058
     Dates: end: 20210417

REACTIONS (4)
  - Gastric ulcer haemorrhage [Unknown]
  - Injection site pruritus [Unknown]
  - Anaphylactic reaction [Unknown]
  - Injection site warmth [Unknown]
